FAERS Safety Report 17568560 (Version 1)
Quarter: 2020Q1

REPORT INFORMATION
  Report Type: Spontaneous
  Country: US (occurrence: US)
  Receive Date: 20200320
  Receipt Date: 20200320
  Transmission Date: 20200409
  Serious: No
  Sender: FDA-Public Use
  Company Number: US-TEIKOKU PHARMA USA-TPU2020-00157

PATIENT
  Sex: Male

DRUGS (1)
  1. LIDOCAINE PATCH [Suspect]
     Active Substance: LIDOCAINE
     Indication: POST HERPETIC NEURALGIA
     Route: 061

REACTIONS (1)
  - Product prescribing issue [Unknown]
